FAERS Safety Report 5660478-2 (Version None)
Quarter: 2008Q1

REPORT INFORMATION
  Report Type: 
  Country: None (occurrence: None)
  Receive Date: 20080306
  Receipt Date: 20080228
  Transmission Date: 20080703
  Serious: Yes (Death)
  Sender: FDA-Public Use
  Company Number: PHFR2008GB00991

PATIENT
  Age: 76 Year
  Sex: Female

DRUGS (6)
  1. TEMAZEPAM           (TEMAZEPAM) UNKNOWN [Suspect]
     Indication: ANAESTHESIA
     Dosage: 10 MG, ONCE/SINGLE
     Dates: start: 19990210
  2. MIDAZOLAM HCL [Suspect]
     Indication: ANAESTHESIA
     Dosage: 2 MG, ONCE/SINGLE
     Dates: start: 19990210
  3. PROPOFOL [Suspect]
     Indication: ANAESTHESIA
     Dosage: 50 MG, ONCE/SINGLE
     Dates: start: 19990210
  4. NITROUS OXIDE W/ OXYGEN [Suspect]
     Dosage: 50UG  ONCE  SINGLE
     Route: 042
     Dates: start: 19990210
  5. SEVOFLURANE [Suspect]
     Dates: start: 19990210
  6. SUBLIMAZE       (FENTANYL) [Suspect]
     Indication: ANAESTHESIA
     Dosage: 50 UG, ONCE/SINGLE, INTRAVENOUS
     Route: 042
     Dates: start: 19990210

REACTIONS (4)
  - CARBON DIOXIDE DECREASED [None]
  - CARDIAC FAILURE [None]
  - HEART RATE INCREASED [None]
  - PULSE ABSENT [None]
